FAERS Safety Report 6816385-2 (Version None)
Quarter: 2010Q3

REPORT INFORMATION
  Report Type: 
  Country: None (occurrence: None)
  Receive Date: 20100705
  Receipt Date: 20100628
  Transmission Date: 20110219
  Serious: Yes (Death, Hospitalization, Other)
  Sender: FDA-Public Use
  Company Number: PHHY2010US31788

PATIENT
  Sex: Male

DRUGS (2)
  1. EXJADE [Suspect]
     Indication: MYELODYSPLASTIC SYNDROME
     Dosage: 1 DF/DAY
     Route: 048
     Dates: start: 20090801, end: 20091101
  2. EXJADE [Suspect]
     Indication: SERUM FERRITIN INCREASED
     Dosage: 4 DF/DAY
     Route: 048
     Dates: start: 20091101, end: 20100416

REACTIONS (4)
  - ANAEMIA [None]
  - BLOOD CREATININE INCREASED [None]
  - RENAL FAILURE [None]
  - THROMBOCYTOPENIA [None]
